FAERS Safety Report 4534608-X (Version None)
Quarter: 2004Q4

REPORT INFORMATION
  Report Type: 
  Country: None (occurrence: None)
  Receive Date: 20041214
  Receipt Date: 20040923
  Transmission Date: 20050328
  Serious: No
  Sender: FDA-Public Use
  Company Number: USA040773352

PATIENT
  Age: 84 Year
  Sex: Male

DRUGS (3)
  1. CIALIS [Suspect]
     Indication: ERECTILE DYSFUNCTION
     Dosage: 10 MG
     Dates: end: 20040714
  2. ATENOLOL [Concomitant]
  3. LIPITOR [Concomitant]

REACTIONS (2)
  - DIZZINESS [None]
  - SYNCOPE [None]
